FAERS Safety Report 6366269-1 (Version None)
Quarter: 2009Q3

REPORT INFORMATION
  Report Type: 
  Country: None (occurrence: None)
  Receive Date: 20090921
  Receipt Date: 20090914
  Transmission Date: 20100115
  Serious: Yes (Disabling)
  Sender: FDA-Public Use
  Company Number: MT-SANOFI-SYNTHELABO-A01200909556

PATIENT
  Age: 61 Year
  Sex: Female

DRUGS (3)
  1. ASPIRIN [Concomitant]
     Indication: DRUG USE FOR UNKNOWN INDICATION
     Route: 048
  2. CLOPIDOGREL [Suspect]
     Indication: ARTERIOSCLEROSIS OBLITERANS
     Route: 048
     Dates: start: 20081201
  3. ANTI-DIABETIC DRUGS NOS [Concomitant]
     Indication: DIABETES MELLITUS
     Dosage: UNK
     Route: 065

REACTIONS (2)
  - FUNGAL INFECTION [None]
  - RASH PRURITIC [None]
